FAERS Safety Report 9453099 (Version 1)
Quarter: 2013Q3

REPORT INFORMATION
  Report Type: Spontaneous
  Country: CA (occurrence: CA)
  Receive Date: 20130812
  Receipt Date: 20130812
  Transmission Date: 20140515
  Serious: Yes (Death)
  Sender: FDA-Public Use
  Company Number: CA-TEVA-425587USA

PATIENT
  Age: 85 Year
  Sex: 0
  Weight: 85 kg

DRUGS (5)
  1. GABAPENTIN [Suspect]
     Dosage: 200 MILLIGRAM DAILY;
     Route: 048
  2. GABAPENTIN [Suspect]
     Dosage: 100 MILLIGRAM DAILY;
     Route: 048
  3. ASPIRIN [Concomitant]
     Route: 065
  4. ETHANOL [Concomitant]
     Route: 065
  5. MULTIVITAMIN [Concomitant]
     Route: 065

REACTIONS (1)
  - Coronary artery disease [Fatal]
